FAERS Safety Report 13314824 (Version 2)
Quarter: 2017Q1

REPORT INFORMATION
  Report Type: Spontaneous
  Country: BE (occurrence: BE)
  Receive Date: 20170309
  Receipt Date: 20170314
  Transmission Date: 20170428
  Serious: Yes (Death, Other)
  Sender: FDA-Public Use
  Company Number: BE-BAXALTA-2017BLT001723

PATIENT
  Age: 59 Year
  Sex: Male

DRUGS (2)
  1. ADVATE [Suspect]
     Active Substance: ANTIHEMOPHILIC FACTOR, HUMAN RECOMBINANT
     Indication: SURGERY
  2. ADVATE [Suspect]
     Active Substance: ANTIHEMOPHILIC FACTOR, HUMAN RECOMBINANT
     Indication: FACTOR VIII DEFICIENCY
     Dosage: UNK, BOLUS PLUS MAINTENANCE
     Route: 065
     Dates: start: 20170217

REACTIONS (3)
  - Intestinal ischaemia [Unknown]
  - Death [Fatal]
  - Vascular stent thrombosis [Unknown]

NARRATIVE: CASE EVENT DATE: 20170217
